FAERS Safety Report 20000169 (Version 2)
Quarter: 2022Q1

REPORT INFORMATION
  Report Type: Spontaneous
  Country: FR (occurrence: FR)
  Receive Date: 20211027
  Receipt Date: 20220131
  Transmission Date: 20220423
  Serious: Yes (Disabling, Other)
  Sender: FDA-Public Use
  Company Number: FR-ABBVIE-21K-056-4136016-00

PATIENT
  Age: 69 Year
  Sex: Female

DRUGS (11)
  1. DEPAKOTE [Suspect]
     Active Substance: DIVALPROEX SODIUM
     Indication: Mania
     Route: 048
     Dates: start: 201811, end: 20190607
  2. DEPAKOTE [Suspect]
     Active Substance: DIVALPROEX SODIUM
     Dosage: REDUCED DOSE
     Route: 048
  3. TRIHEXYPHENIDYL HYDROCHLORIDE [Suspect]
     Active Substance: TRIHEXYPHENIDYL HYDROCHLORIDE
     Indication: Extrapyramidal disorder
     Route: 048
     Dates: start: 201811, end: 20190718
  4. KARDEGIC [Concomitant]
     Active Substance: ASPIRIN DL-LYSINE
     Indication: Product used for unknown indication
  5. ALENDRONIC ACID [Concomitant]
     Active Substance: ALENDRONIC ACID
     Indication: Product used for unknown indication
  6. EFFEXOR [Concomitant]
     Active Substance: VENLAFAXINE HYDROCHLORIDE
     Indication: Product used for unknown indication
  7. PRAZEPAM [Concomitant]
     Active Substance: PRAZEPAM
     Indication: Product used for unknown indication
  8. CALCIDOSE [Concomitant]
     Indication: Product used for unknown indication
  9. PREDNISONE [Concomitant]
     Active Substance: PREDNISONE
     Indication: Product used for unknown indication
  10. KARDEGIC [Concomitant]
     Active Substance: ASPIRIN DL-LYSINE
     Indication: Product used for unknown indication
  11. LEVOTHYROXINE [Concomitant]
     Active Substance: LEVOTHYROXINE
     Indication: Product used for unknown indication

REACTIONS (3)
  - Dyskinesia [Recovered/Resolved]
  - Dementia [Recovered/Resolved]
  - Parkinsonism [Recovered/Resolved]

NARRATIVE: CASE EVENT DATE: 20181101
